FAERS Safety Report 19208705 (Version 2)
Quarter: 2021Q2

REPORT INFORMATION
  Report Type: Spontaneous
  Country: US (occurrence: US)
  Receive Date: 20210504
  Receipt Date: 20210607
  Transmission Date: 20210717
  Serious: No
  Sender: FDA-Public Use
  Company Number: US-ALK-ABELLO A/S-2021AA001292

PATIENT

DRUGS (1)
  1. HISTATROL 1MG/ML (PERCUTANEOUS) [Suspect]
     Active Substance: HISTAMINE PHOSPHATE
     Indication: SKIN TEST
     Dosage: UNK
     Dates: start: 20210408, end: 20210408

REACTIONS (1)
  - False negative investigation result [Unknown]

NARRATIVE: CASE EVENT DATE: 20210408
